FAERS Safety Report 19964758 (Version 1)
Quarter: 2021Q4

REPORT INFORMATION
  Report Type: Spontaneous
  Country: US (occurrence: US)
  Receive Date: 20211018
  Receipt Date: 20211018
  Transmission Date: 20220303
  Serious: No
  Sender: FDA-Public Use
  Company Number: US-PFIZER INC-2021363963

PATIENT
  Age: 64 Year
  Sex: Male
  Weight: 126.98 kg

DRUGS (2)
  1. ZITHROMAX [Suspect]
     Active Substance: AZITHROMYCIN DIHYDRATE
     Indication: Upper respiratory tract infection
     Dosage: UNK
  2. SOLU-MEDROL [Suspect]
     Active Substance: METHYLPREDNISOLONE SODIUM SUCCINATE
     Indication: Upper respiratory tract infection
     Dosage: 125 MG SOLUTION, RECONSTITUTED AS DIRECTED INJECTION

REACTIONS (7)
  - Cough [Unknown]
  - Dyspnoea [Unknown]
  - Wheezing [Unknown]
  - Sinusitis [Unknown]
  - Pain [Unknown]
  - Nasal congestion [Unknown]
  - Rhinorrhoea [Unknown]
